FAERS Safety Report 6604360-2 (Version None)
Quarter: 2010Q1

REPORT INFORMATION
  Report Type: 
  Country: None (occurrence: None)
  Receive Date: 20100226
  Receipt Date: 20090827
  Transmission Date: 20100710
  Serious: No
  Sender: FDA-Public Use
  Company Number: A0805426A

PATIENT
  Age: 21 Year
  Sex: Female

DRUGS (4)
  1. LAMICTAL CD [Suspect]
     Route: 048
  2. SEROQUEL [Concomitant]
  3. DEPAKOTE [Concomitant]
  4. RISPERDAL [Concomitant]

REACTIONS (4)
  - ACNE [None]
  - RASH [None]
  - RASH PUSTULAR [None]
  - SKIN LESION [None]
